FAERS Safety Report 24456905 (Version 1)
Quarter: 2024Q4

REPORT INFORMATION
  Report Type: Report from Study
  Country: US (occurrence: US)
  Receive Date: 20241018
  Receipt Date: 20241018
  Transmission Date: 20250115
  Serious: Yes (Hospitalization, Other)
  Sender: ABBVIE
  Company Number: US-ABBVIE-5960270

PATIENT
  Age: 60 Year
  Sex: Female

DRUGS (2)
  1. SKYRIZI [Suspect]
     Active Substance: RISANKIZUMAB-RZAA
     Indication: Crohn^s disease
     Dosage: FORM STRENGTH: 360MG/2.4M?FIRST DOSE
     Route: 058
  2. SKYRIZI [Suspect]
     Active Substance: RISANKIZUMAB-RZAA
     Dosage: FORM STRENGTH: 360MG/2.4M?SECOND DOSE
     Route: 058
     Dates: start: 2024

REACTIONS (5)
  - Colon neoplasm [Unknown]
  - Ureteral neoplasm [Unknown]
  - Device issue [Unknown]
  - Pain [Recovering/Resolving]
  - Intussusception [Unknown]

NARRATIVE: CASE EVENT DATE: 20230501
